FAERS Safety Report 5592441-4 (Version None)
Quarter: 2007Q4

REPORT INFORMATION
  Report Type: 
  Country: None (occurrence: None)
  Receive Date: 20071217
  Receipt Date: 20070928
  Transmission Date: 20080405
  Serious: No
  Sender: FDA-Public Use
  Company Number: BDI-010265

PATIENT
  Age: 74 Year
  Sex: Female
  Weight: 81 kg

DRUGS (2)
  1. MULTIHANCE [Suspect]
     Indication: BLOOD PRESSURE INCREASED
     Dosage: IV
     Route: 042
     Dates: start: 20070928, end: 20070928
  2. MULTIHANCE [Suspect]
     Indication: BLOOD PRESSURE INCREASED
     Dosage: IV
     Route: 042
     Dates: start: 20070928, end: 20070928

REACTIONS (2)
  - NASAL CONGESTION [None]
  - NASAL DISCOMFORT [None]
